FAERS Safety Report 23608465 (Version 2)
Quarter: 2024Q1

REPORT INFORMATION
  Report Type: Spontaneous
  Country: TN (occurrence: TN)
  Receive Date: 20240307
  Receipt Date: 20240321
  Transmission Date: 20240410
  Serious: Yes (Death, Life-Threatening, Hospitalization, Other)
  Sender: FDA-Public Use
  Company Number: TN-MACLEODS PHARMACEUTICALS US LTD-MAC2024046192

PATIENT

DRUGS (1)
  1. ESCITALOPRAM [Suspect]
     Active Substance: ESCITALOPRAM OXALATE
     Indication: Bipolar disorder
     Dosage: 10 MILLIGRAM COMP.PELL.SEC. BT 15 (TERIAK), ESOPREX
     Route: 065

REACTIONS (4)
  - Cutaneous vasculitis [Fatal]
  - Pulmonary alveolar haemorrhage [Fatal]
  - Multiple organ dysfunction syndrome [Fatal]
  - Treatment noncompliance [Unknown]
